FAERS Safety Report 4337805-1 (Version None)
Quarter: 2004Q2

REPORT INFORMATION
  Report Type: 
  Country: None (occurrence: None)
  Receive Date: 20040408
  Receipt Date: 20040324
  Transmission Date: 20050107
  Serious: Yes (Other)
  Sender: FDA-Public Use
  Company Number: 232913

PATIENT
  Age: 1 Day
  Sex: Female

DRUGS (36)
  1. NOVORAPID PENFILL 3 ML(NOVORAPID PENFILL 3 ML) SOLUTION FOR INJECTION, [Suspect]
     Indication: DIABETES MELLITUS
     Dosage: 20 U, QD, INTRAUTERINE
     Route: 015
     Dates: start: 20030225
  2. PROTAPHANE PENFILL HM(GE) 3 ML (INSULIN HUMAN) SUSPENSION FOR INJECTIO [Concomitant]
  3. FENTANYL [Concomitant]
  4. DROPERIDOL [Concomitant]
  5. AMPICILLIN [Concomitant]
  6. BIFIDUM BACTERIA [Concomitant]
  7. GLUTAMIC ACID (GLUTAMIC ACID) [Concomitant]
  8. ESSENTIALE (VITAMINS NOS) [Concomitant]
  9. LASIX [Concomitant]
  10. EUPHYLLIN (AMINOPHYLLINE) [Concomitant]
  11. PANANGIN (ASPARTATE POTASSIUM, MAGNESIUM ASPARTATE) [Concomitant]
  12. CURANTYL (DIPYRIDAMOLE) [Concomitant]
  13. DIAZEPAM [Concomitant]
  14. L-THYROXIN ^HENNING BERLIN^ (LEVOTHYROXINE SODIUM) [Concomitant]
  15. VERAPAMIL HCL [Concomitant]
  16. FUROSEMID ^DAK^ (FUROSEMIDE) [Concomitant]
  17. MILDRONATE (MILDRONATE) [Concomitant]
  18. MAFUSAL [Concomitant]
  19. CLOPHELIN (CLONIDINE HYDROCHLORIDE) [Concomitant]
  20. GLUCOSE [Concomitant]
  21. OXYTOCIN 10 USP UNITS IN DEXTROSE 5% [Concomitant]
  22. KETONAL (KETOPROFEN) [Concomitant]
  23. ANALGIN (METAMIZOLE SODIUM) [Concomitant]
  24. DIMEDROL [Concomitant]
  25. PROMEDOL (TRIMEPERIDINE HYDROCHLORIDE) [Concomitant]
  26. NO-SPA (DROTAVERINE HYDROCHLORIDE) [Concomitant]
  27. CEFANTRAL [Concomitant]
  28. DROPERIDOL [Concomitant]
  29. ATROPINE SULFATE [Concomitant]
  30. . [Concomitant]
  31. KETAMINE HCL [Concomitant]
  32. LYSTHENON (SUXAMETHONIUM CHLORIDE) [Concomitant]
  33. ARDUAN (PIPECURONIUM BROMIDE) [Concomitant]
  34. ESPUMISAN (DIMETICONE) [Concomitant]
  35. FOLIC ACID [Concomitant]
  36. VITAMIN B1 TAB [Concomitant]

REACTIONS (5)
  - APGAR SCORE LOW [None]
  - CARDIOMYOPATHY NEONATAL [None]
  - HYPOGLYCAEMIA NEONATAL [None]
  - MATERNAL CONDITION AFFECTING FOETUS [None]
  - MATERNAL DRUGS AFFECTING FOETUS [None]
